FAERS Safety Report 11219116 (Version 2)
Quarter: 2015Q2

REPORT INFORMATION
  Report Type: Spontaneous
  Country: BG (occurrence: BG)
  Receive Date: 20150625
  Receipt Date: 20150626
  Transmission Date: 20150821
  Serious: Yes (Life-Threatening, Other)
  Sender: FDA-Public Use
  Company Number: BG-ASTRAZENECA-2015SE61244

PATIENT
  Age: 882 Month
  Sex: Male
  Weight: 63 kg

DRUGS (5)
  1. BISOGAMMA [Concomitant]
  2. BRILIQUE [Suspect]
     Active Substance: TICAGRELOR
     Indication: ACUTE MYOCARDIAL INFARCTION
     Dosage: TWO TIMES A DAY
     Route: 048
     Dates: start: 20150511
  3. ASPIRIN. [Concomitant]
     Active Substance: ASPIRIN
  4. ISODINIT [Concomitant]
  5. ROSWERA [Concomitant]

REACTIONS (3)
  - Thrombosis in device [Unknown]
  - Cardiac failure [Unknown]
  - Angina unstable [Unknown]

NARRATIVE: CASE EVENT DATE: 201506
